FAERS Safety Report 5812255-7 (Version None)
Quarter: 2008Q3

REPORT INFORMATION
  Report Type: 
  Country: None (occurrence: None)
  Receive Date: 20080711
  Receipt Date: 20080701
  Transmission Date: 20090109
  Serious: Yes (Hospitalization)
  Sender: FDA-Public Use
  Company Number: 2008-02392

PATIENT
  Age: 59 Year
  Sex: Male
  Weight: 89.9 kg

DRUGS (6)
  1. VELCADE [Suspect]
     Indication: MANTLE CELL LYMPHOMA
     Dosage: 5.4 MG, UNK, INTRAVENOUS
     Route: 042
     Dates: start: 20080616, end: 20080619
  2. CYCLOPHOSPHAMIDE [Suspect]
     Indication: MANTLE CELL LYMPHOMA
     Dosage: 3780 MG, UNK, INTRAVENOUS
     Route: 042
     Dates: start: 20080616, end: 20080619
  3. RITUXAN [Suspect]
     Indication: MANTLE CELL LYMPHOMA
     Dosage: 790 MG, UNK, INTRAVENOUS
     Route: 042
     Dates: start: 20080616
  4. DOXORUBICIN HCL [Suspect]
     Indication: MANTLE CELL LYMPHOMA
     Dosage: 106 MG, UNK, INTRAVENOUS
     Route: 042
     Dates: start: 20080616, end: 20080617
  5. DEXAMETHASONE TAB [Suspect]
     Indication: MANTLE CELL LYMPHOMA
     Dosage: 160MG UNK, ORAL
     Route: 048
     Dates: start: 20080616, end: 20080619
  6. VINCRISTINE [Suspect]
     Indication: MANTLE CELL LYMPHOMA
     Dosage: 1 MG, UNK, INTRAVENOUS
     Route: 042
     Dates: start: 20080619

REACTIONS (3)
  - FEBRILE NEUTROPENIA [None]
  - PLATELET COUNT DECREASED [None]
  - PNEUMONIA [None]
